FAERS Safety Report 9012246 (Version 1)
Quarter: 2013Q1

REPORT INFORMATION
  Report Type: Spontaneous
  Country: CN (occurrence: CN)
  Receive Date: 20130114
  Receipt Date: 20130114
  Transmission Date: 20140127
  Serious: Yes (Other)
  Sender: FDA-Public Use
  Company Number: PHHY2013CN002186

PATIENT
  Age: 16 Year
  Sex: Female

DRUGS (1)
  1. INTERFERON BETA-1B [Suspect]
     Indication: MULTIPLE SCLEROSIS
     Dosage: UNK UKN, 3 TIMES PER WEEK
     Route: 058

REACTIONS (9)
  - Acute disseminated encephalomyelitis [Recovered/Resolved]
  - Apathy [Recovered/Resolved]
  - Headache [Recovered/Resolved]
  - Muscular weakness [Recovered/Resolved]
  - Demyelination [Recovered/Resolved]
  - Urinary retention [Recovered/Resolved]
  - Central nervous system lesion [Recovered/Resolved]
  - Spinal disorder [Recovered/Resolved]
  - Upper respiratory tract infection [Recovered/Resolved]
